FAERS Safety Report 9566602 (Version 3)
Quarter: 2013Q4

REPORT INFORMATION
  Report Type: Report from Study
  Country: US (occurrence: US)
  Receive Date: 20130930
  Receipt Date: 20131126
  Transmission Date: 20140711
  Serious: Yes (Hospitalization)
  Sender: FDA-Public Use
  Company Number: US-ROCHE-1276839

PATIENT
  Age: 45 Year
  Sex: Female
  Weight: 69.1 kg

DRUGS (13)
  1. GDC-0941 (PI3K INHIBITOR) [Suspect]
     Indication: BREAST CANCER METASTATIC
     Dosage: DATE OF MOST RECENT DOSE (180 MG): 13/SEP/2013
     Route: 048
     Dates: start: 20100525
  2. TRASTUZUMAB EMTANSINE [Suspect]
     Indication: BREAST CANCER METASTATIC
     Dosage: DATE OF MOST RECENT DOSE (207.3 MG): 11/SEP/2013
     Route: 042
     Dates: start: 20100525
  3. REMERON [Concomitant]
     Indication: DEPRESSION
     Route: 048
     Dates: start: 200910
  4. MORPHINE ER [Concomitant]
     Indication: PAIN
     Route: 048
     Dates: start: 200910
  5. ZOMETA [Concomitant]
     Indication: METASTASES TO BONE
     Dosage: DOSE: 3-4 MG
     Route: 042
     Dates: start: 20091005
  6. LUPRON [Concomitant]
     Indication: CONTRACEPTION
     Dosage: DOSE: 7.5-22.5 MG
     Route: 030
     Dates: start: 20091109
  7. SYSTANE [Concomitant]
     Indication: DRY EYE
     Dosage: 1-2 DROPS
     Route: 047
     Dates: start: 201008
  8. MOMETASONE FUROATE [Concomitant]
     Indication: HYPERSENSITIVITY
     Dosage: REPORTED AS NASONEX
     Route: 045
     Dates: start: 201109
  9. MOMETASONE FUROATE [Concomitant]
     Indication: RASH PRURITIC
     Dosage: REPORTED AS ELOCON
     Route: 061
     Dates: start: 20130612
  10. MEDROL DOSEPAK [Concomitant]
     Indication: PNEUMONIA
     Dosage: DOSE: 24-8 MG
     Route: 048
     Dates: start: 20130320
  11. MEDROL DOSEPAK [Concomitant]
     Route: 048
     Dates: start: 20130908, end: 20130914
  12. SPIRONOLACTONE [Concomitant]
     Route: 048
     Dates: start: 20130612
  13. CORTISONE [Concomitant]
     Indication: RASH PRURITIC
     Route: 061
     Dates: start: 20130713

REACTIONS (1)
  - Bacteraemia [Recovered/Resolved]
